FAERS Safety Report 20063760 (Version 2)
Quarter: 2021Q4

REPORT INFORMATION
  Report Type: Spontaneous
  Country: BR (occurrence: BR)
  Receive Date: 20211112
  Receipt Date: 20211114
  Transmission Date: 20220303
  Serious: Yes (Life-Threatening, Other)
  Sender: FDA-Public Use
  Company Number: None

PATIENT
  Sex: Male

DRUGS (29)
  1. LOSARTAN POTASSIUM [Suspect]
     Active Substance: LOSARTAN POTASSIUM
     Indication: Hypertension
     Dosage: 1 TABLET, FREQUENCY NOT KNOWN
     Route: 065
  2. COSENTYX [Suspect]
     Active Substance: SECUKINUMAB
     Indication: Ankylosing spondylitis
     Dosage: 300 MILLIGRAM
     Dates: start: 20191219
  3. COSENTYX [Suspect]
     Active Substance: SECUKINUMAB
     Indication: Psoriatic arthropathy
     Dosage: 300 UNK
  4. COSENTYX [Suspect]
     Active Substance: SECUKINUMAB
     Dosage: 150 MILLIGRAM
  5. COSENTYX [Suspect]
     Active Substance: SECUKINUMAB
     Dosage: UNK
     Dates: start: 201912
  6. COSENTYX [Suspect]
     Active Substance: SECUKINUMAB
     Dosage: 150 MILLIGRAM, QM
  7. COSENTYX [Suspect]
     Active Substance: SECUKINUMAB
     Dosage: 300 MILLIGRAM
     Dates: start: 20201222
  8. COSENTYX [Suspect]
     Active Substance: SECUKINUMAB
     Dosage: 300 MILLIGRAM
     Dates: start: 20210120
  9. COSENTYX [Suspect]
     Active Substance: SECUKINUMAB
     Dosage: 300 MILLIGRAM, QM
     Dates: start: 20210122
  10. COSENTYX [Suspect]
     Active Substance: SECUKINUMAB
     Dosage: 300 MILLIGRAM
     Route: 058
     Dates: start: 20210222
  11. COSENTYX [Suspect]
     Active Substance: SECUKINUMAB
     Dosage: UNK
     Dates: start: 20210824
  12. COSENTYX [Suspect]
     Active Substance: SECUKINUMAB
     Dosage: UNK
  13. ATENOLOL [Suspect]
     Active Substance: ATENOLOL
     Indication: Hypertension
     Dosage: 2 TABLETS, FREQUENCY NOT KNOWN
     Route: 065
  14. ATENOLOL [Suspect]
     Active Substance: ATENOLOL
     Dosage: 1 TABLET, FREQUENCY NOT KNOWN
  15. HYDROCHLOROTHIAZIDE [Suspect]
     Active Substance: HYDROCHLOROTHIAZIDE
     Dosage: 1 TABLET, FREQUENCY NOT KNOWN
     Route: 065
  16. COSENTYX [Suspect]
     Active Substance: SECUKINUMAB
     Indication: Psoriatic arthropathy
     Dosage: UNK
  17. COSENTYX [Suspect]
     Active Substance: SECUKINUMAB
     Indication: Ankylosing spondylitis
     Dosage: 2 APPLICATIONS (2 INJECTIONS OF 150 MG MG/ML)
     Route: 065
     Dates: start: 20210122
  18. COSENTYX [Suspect]
     Active Substance: SECUKINUMAB
     Dosage: 150 MG ONCE A MONTH (TWO INJECTIONS)
     Route: 065
  19. COSENTYX [Suspect]
     Active Substance: SECUKINUMAB
     Dosage: UNK
     Route: 065
     Dates: start: 201912
  20. COSENTYX [Suspect]
     Active Substance: SECUKINUMAB
     Dosage: 150 MILLIGRAM
     Route: 065
  21. COSENTYX [Suspect]
     Active Substance: SECUKINUMAB
     Dosage: 300 MILLIGRAM
     Route: 065
  22. COSENTYX [Suspect]
     Active Substance: SECUKINUMAB
     Dosage: UNK
     Route: 065
     Dates: start: 20191219
  23. METHOTREXATE SODIUM [Concomitant]
     Active Substance: METHOTREXATE SODIUM
     Dosage: UNK
     Dates: start: 2013
  24. CELECOXIB [Concomitant]
     Active Substance: CELECOXIB
     Dosage: UNK
  25. ETANERCEPT [Concomitant]
     Active Substance: ETANERCEPT
     Dosage: UNK
  26. LEVOFLOXACIN [Concomitant]
     Active Substance: LEVOFLOXACIN
     Dosage: UNK
  27. FENERGAN [PROMETHAZINE HYDROCHLORIDE] [Concomitant]
     Dosage: UNK
  28. FENERGAN [PROMETHAZINE HYDROCHLORIDE] [Concomitant]
     Dosage: UNK
  29. FOLIC ACID [Concomitant]
     Active Substance: FOLIC ACID
     Dosage: UNK

REACTIONS (60)
  - Ankylosing spondylitis [Not Recovered/Not Resolved]
  - Concomitant disease aggravated [Not Recovered/Not Resolved]
  - Back pain [Not Recovered/Not Resolved]
  - Back pain [Not Recovered/Not Resolved]
  - Movement disorder [Not Recovered/Not Resolved]
  - Musculoskeletal stiffness [Unknown]
  - Gait disturbance [Not Recovered/Not Resolved]
  - Spinal disorder [Not Recovered/Not Resolved]
  - Pain [Not Recovered/Not Resolved]
  - Musculoskeletal discomfort [Recovering/Resolving]
  - Feeling abnormal [Not Recovered/Not Resolved]
  - Pain in extremity [Not Recovered/Not Resolved]
  - Tachycardia [Recovering/Resolving]
  - Decreased immune responsiveness [Not Recovered/Not Resolved]
  - Osteoarthritis [Not Recovered/Not Resolved]
  - Ataxia [Not Recovered/Not Resolved]
  - Deafness [Not Recovered/Not Resolved]
  - Left ventricular hypertrophy [Recovering/Resolving]
  - Nervousness [Unknown]
  - Scoliosis [Recovered/Resolved]
  - Cardiac discomfort [Not Recovered/Not Resolved]
  - Limb discomfort [Unknown]
  - Bone pain [Not Recovered/Not Resolved]
  - Fractured coccyx [Not Recovered/Not Resolved]
  - Decreased appetite [Not Recovered/Not Resolved]
  - Inflammation [Not Recovered/Not Resolved]
  - Fall [Unknown]
  - Bone disorder [Not Recovered/Not Resolved]
  - Plantar fasciitis [Not Recovered/Not Resolved]
  - Arthritis [Not Recovered/Not Resolved]
  - Visual impairment [Not Recovered/Not Resolved]
  - Peripheral swelling [Not Recovered/Not Resolved]
  - Hypertension [Recovering/Resolving]
  - Arthropathy [Not Recovered/Not Resolved]
  - Dandruff [Recovered/Resolved]
  - Oral pain [Unknown]
  - Bradyphrenia [Unknown]
  - Therapeutic product effect incomplete [Unknown]
  - Hypoaesthesia [Unknown]
  - Vision blurred [Unknown]
  - Fatigue [Not Recovered/Not Resolved]
  - Tinnitus [Not Recovered/Not Resolved]
  - Myalgia [Not Recovered/Not Resolved]
  - Headache [Not Recovered/Not Resolved]
  - Arthralgia [Not Recovered/Not Resolved]
  - Insomnia [Not Recovered/Not Resolved]
  - Malaise [Not Recovered/Not Resolved]
  - Product dose omission issue [Unknown]
  - Loss of control of legs [Not Recovered/Not Resolved]
  - Immunodeficiency [Not Recovered/Not Resolved]
  - Ataxia [Not Recovered/Not Resolved]
  - Left ventricular hypertrophy [Recovering/Resolving]
  - Vision blurred [Unknown]
  - Hypoaesthesia [Unknown]
  - Plantar fasciitis [Not Recovered/Not Resolved]
  - Bursitis [Unknown]
  - Rotator cuff syndrome [Unknown]
  - Tendon disorder [Unknown]
  - Dermatitis [Not Recovered/Not Resolved]
  - Cardiovascular disorder [Unknown]

NARRATIVE: CASE EVENT DATE: 20190101
